FAERS Safety Report 21122621 (Version 5)
Quarter: 2022Q4

REPORT INFORMATION
  Report Type: Report from Study
  Country: CO (occurrence: CO)
  Receive Date: 20220723
  Receipt Date: 20221104
  Transmission Date: 20230113
  Serious: Yes (Other)
  Sender: FDA-Public Use
  Company Number: CO-AMGEN-COLSL2022062401

PATIENT
  Age: 75 Year
  Sex: Female

DRUGS (5)
  1. VECTIBIX [Suspect]
     Active Substance: PANITUMUMAB
     Indication: Colorectal cancer
     Dosage: UNK, Q2WK
     Route: 042
     Dates: start: 20220401
  2. VECTIBIX [Suspect]
     Active Substance: PANITUMUMAB
     Indication: Anal cancer
     Dosage: 100 MILLIGRAM, Q2WK
     Route: 042
     Dates: start: 2022
  3. VECTIBIX [Suspect]
     Active Substance: PANITUMUMAB
     Dosage: 309 MILLIGRAM Q2WK
     Route: 042
  4. VECTIBIX [Suspect]
     Active Substance: PANITUMUMAB
     Dosage: 185 MILLIGRAM, Q2WK
     Route: 042
     Dates: start: 2022
  5. POLYVINYL ALCOHOL [Concomitant]
     Active Substance: POLYVINYL ALCOHOL
     Dosage: APPLY ON THE EYES 2 TO 3 TIMES A DAY
     Dates: start: 20220408

REACTIONS (15)
  - Stevens-Johnson syndrome [Recovered/Resolved]
  - Decreased appetite [Not Recovered/Not Resolved]
  - Illness [Not Recovered/Not Resolved]
  - Speech disorder [Not Recovered/Not Resolved]
  - Bedridden [Not Recovered/Not Resolved]
  - Wound [Not Recovered/Not Resolved]
  - Scab [Not Recovered/Not Resolved]
  - Dizziness [Recovered/Resolved]
  - Pain in extremity [Not Recovered/Not Resolved]
  - Rash [Not Recovered/Not Resolved]
  - Asthenia [Not Recovered/Not Resolved]
  - Chills [Unknown]
  - Nausea [Recovered/Resolved]
  - Vomiting [Recovered/Resolved]
  - Inappropriate schedule of product administration [Unknown]

NARRATIVE: CASE EVENT DATE: 20220101
